FAERS Safety Report 9357722 (Version 2)
Quarter: 2014Q1

REPORT INFORMATION
  Report Type: Spontaneous
  Country: FR (occurrence: FR)
  Receive Date: 20130620
  Receipt Date: 20140123
  Transmission Date: 20141002
  Serious: Yes (Other)
  Sender: FDA-Public Use
  Company Number: FR-PFIZER INC-2013180227

PATIENT
  Age: 32 Year
  Sex: Female

DRUGS (4)
  1. ADEPAL [Suspect]
     Indication: DYSMENORRHOEA
     Dosage: 1 DF, 1X/DAY, 21 DAYS MONTHLY
     Route: 048
     Dates: start: 20121204
  2. ADEPAL [Suspect]
     Indication: MENOMETRORRHAGIA
     Dosage: 1 DF, 1X/DAY
     Route: 048
     Dates: start: 20130121, end: 20130410
  3. RISPERDAL [Suspect]
     Indication: ABNORMAL BEHAVIOUR
     Dosage: 2 MG, 1X/DAY
     Route: 048
     Dates: end: 20130410
  4. DEPAKINE [Suspect]
     Indication: EPILEPSY
     Dosage: 500 MG, 2X/DAY
     Route: 048
     Dates: end: 20130410

REACTIONS (2)
  - Hepatitis acute [Recovered/Resolved]
  - Off label use [Recovered/Resolved]
